FAERS Safety Report 11837045 (Version 1)
Quarter: 2015Q4

REPORT INFORMATION
  Report Type: Spontaneous
  Country: DE (occurrence: DE)
  Receive Date: 20151215
  Receipt Date: 20151215
  Transmission Date: 20160305
  Serious: Yes (Other)
  Sender: FDA-Public Use
  Company Number: DE-WARNER CHILCOTT, LLC-1045502

PATIENT
  Age: 83 Year
  Sex: Female

DRUGS (1)
  1. ACTONEL [Suspect]
     Active Substance: RISEDRONATE SODIUM
     Indication: OSTEOPOROSIS
     Route: 048

REACTIONS (3)
  - Wrong technique in product usage process [Unknown]
  - Oesophageal haemorrhage [Unknown]
  - Product difficult to swallow [Unknown]
